FAERS Safety Report 9222628 (Version 1)
Quarter: 2013Q1

REPORT INFORMATION
  Report Type: Spontaneous
  Country: US (occurrence: None)
  Receive Date: 20120914
  Receipt Date: 20120914
  Transmission Date: 20140127
  Serious: Yes (Other)
  Sender: FDA-Public Use
  Company Number: JPI-P-021650

PATIENT
  Age: 38 Year
  Sex: Female
  Weight: 97.52 kg

DRUGS (4)
  1. XYREM (500 MILLIGRAM/MILLILITERS, SOLUTION) (SODIUM OXYBATE) [Suspect]
     Indication: HYPERSOMNIA
     Route: 048
     Dates: start: 20120328
  2. MOMETASONE FUROATE (NASAL DROPS (INCLUDING NASAL SPRAY) [Concomitant]
  3. LORATADINE (UNKNOWN) [Concomitant]
  4. ALBUTEROL (UNKNOWN) [Concomitant]

REACTIONS (4)
  - Balance disorder [None]
  - Ankle fracture [None]
  - Nausea [None]
  - Procedural pain [None]
